FAERS Safety Report 9869270 (Version 1)
Quarter: 2014Q1

REPORT INFORMATION
  Report Type: Spontaneous
  Country: US (occurrence: US)
  Receive Date: 20140205
  Receipt Date: 20140205
  Transmission Date: 20141002
  Serious: Yes (Other)
  Sender: FDA-Public Use
  Company Number: US-JNJFOC-20140116501

PATIENT
  Age: 4 Year
  Sex: Female
  Weight: 19.5 kg

DRUGS (3)
  1. CHILDREN^S TYLENOL [Suspect]
     Route: 048
  2. CHILDREN^S TYLENOL [Suspect]
     Indication: PYREXIA
     Dosage: DOSAGE: 1 1/2 TEASPOONS
     Route: 048
     Dates: start: 20140123
  3. MOTRIN [Concomitant]
     Indication: PYREXIA
     Dosage: DOSAGE: AS DIRECTED ON THE PACKAGE
     Route: 048
     Dates: start: 20140121, end: 20140123

REACTIONS (1)
  - Urticaria [Not Recovered/Not Resolved]
